FAERS Safety Report 10365990 (Version 1)
Quarter: 2014Q3

REPORT INFORMATION
  Report Type: Spontaneous
  Country: DE (occurrence: None)
  Receive Date: 20140804
  Receipt Date: 20140804
  Transmission Date: 20150326
  Serious: Yes (Hospitalization, Other)
  Sender: FDA-Public Use
  Company Number: AUR-APL-2014-08110

PATIENT
  Age: 42 Year
  Sex: Male

DRUGS (2)
  1. ASPIRIN (ACETYLSALICYLIC ACID) [Suspect]
     Active Substance: ASPIRIN
     Indication: ANTIPLATELET THERAPY
  2. CLOPIDOGREL [Suspect]
     Active Substance: CLOPIDOGREL BISULFATE
     Indication: ANTIPLATELET THERAPY

REACTIONS (5)
  - Platelet count decreased [None]
  - No therapeutic response [None]
  - Cerebral haemorrhage [None]
  - Intraventricular haemorrhage [None]
  - Hydrocephalus [None]
